FAERS Safety Report 6385845-3 (Version None)
Quarter: 2009Q4

REPORT INFORMATION
  Report Type: 
  Country: None (occurrence: None)
  Receive Date: 20091002
  Receipt Date: 20090922
  Transmission Date: 20100525
  Serious: Yes (Other)
  Sender: FDA-Public Use
  Company Number: US-AMGEN-QUU357059

PATIENT
  Sex: Female

DRUGS (2)
  1. ENBREL [Suspect]
     Indication: PSORIATIC ARTHROPATHY
     Route: 058
     Dates: start: 20070722
  2. ENBREL [Suspect]
     Indication: PSORIASIS

REACTIONS (6)
  - CERVICAL DYSPLASIA [None]
  - INJECTION SITE PAIN [None]
  - OVARIAN CYST [None]
  - PSORIASIS [None]
  - UTERINE LEIOMYOMA [None]
  - VAGINAL HAEMORRHAGE [None]
